FAERS Safety Report 9292298 (Version 2)
Quarter: 2014Q1

REPORT INFORMATION
  Report Type: Spontaneous
  Country: GB (occurrence: GB)
  Receive Date: 20130516
  Receipt Date: 20140311
  Transmission Date: 20141002
  Serious: Yes (Hospitalization)
  Sender: FDA-Public Use
  Company Number: GB-BANPHARM-20131294

PATIENT
  Age: 49 Year
  Sex: Female

DRUGS (13)
  1. IBUPROFEN UNKNOWN PRODUCT [Suspect]
     Route: 048
  2. ASPIRIN [Suspect]
     Route: 048
  3. BISOPROLOL [Suspect]
     Route: 048
     Dates: end: 20140206
  4. CLOPIDOGREL [Suspect]
     Route: 048
     Dates: end: 20140206
  5. FLUOXETINE [Suspect]
     Route: 048
     Dates: start: 20130124, end: 20140206
  6. FUROSEMIDE [Suspect]
     Route: 048
  7. PARACETAMOL [Suspect]
     Route: 048
  8. RAMIPRIL [Suspect]
     Route: 048
  9. ZAPONEX [Suspect]
     Indication: SCHIZOPHRENIA
     Route: 048
     Dates: start: 20041014, end: 20130129
  10. ZAPONEX [Suspect]
     Indication: SCHIZOPHRENIA
     Route: 048
     Dates: start: 20130403, end: 20140206
  11. GAVISCON [Concomitant]
     Indication: DYSPEPSIA
     Dosage: 10 ML, PRN,
     Route: 048
  12. LANSOPRAZOLE [Concomitant]
     Indication: DYSPEPSIA
     Dosage: 30 MG,
     Route: 048
  13. OLANZAPINE [Suspect]
     Dates: end: 20140206

REACTIONS (9)
  - Renal failure acute [Recovered/Resolved]
  - Agitation [Unknown]
  - Alanine aminotransferase increased [Recovered/Resolved]
  - Faecal incontinence [Unknown]
  - Confusional state [Unknown]
  - Coma scale abnormal [Unknown]
  - Hypercholesterolaemia [Not Recovered/Not Resolved]
  - Intentional overdose [Recovered/Resolved]
  - Treatment noncompliance [Recovered/Resolved]
